FAERS Safety Report 15422758 (Version 2)
Quarter: 2018Q4

REPORT INFORMATION
  Report Type: Other
  Country: NL (occurrence: NL)
  Receive Date: 20180925
  Receipt Date: 20181011
  Transmission Date: 20190204
  Serious: Yes (Other)
  Sender: FDA-Public Use
  Company Number: NL-DEXPHARM-20180700

PATIENT
  Age: 72 Year
  Sex: Female

DRUGS (8)
  1. ACENOCOUMAROL [Concomitant]
     Active Substance: ACENOCOUMAROL
  2. BISOPROLOL [Concomitant]
     Active Substance: BISOPROLOL
  3. TERIPARATIDE [Concomitant]
     Active Substance: TERIPARATIDE
     Route: 058
  4. OMEPRAZOLE. [Suspect]
     Active Substance: OMEPRAZOLE
  5. PERINDOPRIL [Concomitant]
     Active Substance: PERINDOPRIL
  6. DENOSUMAB [Interacting]
     Active Substance: DENOSUMAB
     Route: 058
  7. ATORVASTATIN [Concomitant]
     Active Substance: ATORVASTATIN
  8. CALCIUM CARBONATE/COLECALCIFEROL [Concomitant]
     Active Substance: CALCIUM CARBONATE\CHOLECALCIFEROL
     Dosage: 500 MG / 800 IE 1 DD

REACTIONS (2)
  - Drug interaction [Recovered/Resolved]
  - Hypomagnesaemia [Recovered/Resolved]
